FAERS Safety Report 6979093-3 (Version None)
Quarter: 2010Q3

REPORT INFORMATION
  Report Type: 
  Country: None (occurrence: None)
  Receive Date: 20100913
  Receipt Date: 20100830
  Transmission Date: 20110219
  Serious: Yes (Other)
  Sender: FDA-Public Use
  Company Number: PHHY2010BR57878

PATIENT
  Sex: Female
  Weight: 36 kg

DRUGS (1)
  1. CODATEN [Suspect]
     Indication: MUSCULOSKELETAL CHEST PAIN
     Dosage: 50 MG, ONE TABLET EVERY EIGHT HOURS
     Route: 048
     Dates: start: 20100814

REACTIONS (7)
  - DIZZINESS [None]
  - DYSSTASIA [None]
  - HEADACHE [None]
  - MIGRAINE [None]
  - NAUSEA [None]
  - SOMNOLENCE [None]
  - VOMITING [None]
